FAERS Safety Report 26035848 (Version 1)
Quarter: 2025Q4

REPORT INFORMATION
  Report Type: Spontaneous
  Country: EU (occurrence: EU)
  Receive Date: 20251112
  Receipt Date: 20251112
  Transmission Date: 20260118
  Serious: Yes (Other)
  Sender: ACCORD
  Company Number: None

PATIENT
  Age: 22 Year
  Sex: Male
  Weight: 66 kg

DRUGS (6)
  1. DAPTOMYCIN [Suspect]
     Active Substance: DAPTOMYCIN
     Indication: Antibiotic prophylaxis
     Dates: end: 20201009
  2. ACETAMINOPHEN [Suspect]
     Active Substance: ACETAMINOPHEN
     Indication: Pain
     Dosage: STRENGTH: 10 MG/ML
  3. AZACTAM [Suspect]
     Active Substance: AZTREONAM
     Indication: Antibiotic prophylaxis
     Dosage: STRENGTH: 1 G, POWDER AND SOLUTION FOR PARENTERAL USE
     Dates: end: 20201009
  4. PROPOFOL [Concomitant]
     Active Substance: PROPOFOL
  5. MIDAZOLAM [Concomitant]
     Active Substance: MIDAZOLAM
  6. BUPIVACAINE HYDROCHLORIDE [Concomitant]
     Active Substance: BUPIVACAINE HYDROCHLORIDE

REACTIONS (2)
  - Urticaria [Recovered/Resolved]
  - Lip oedema [Recovered/Resolved]

NARRATIVE: CASE EVENT DATE: 20201009
